FAERS Safety Report 4433456-9 (Version None)
Quarter: 2004Q3

REPORT INFORMATION
  Report Type: 
  Country: None (occurrence: None)
  Receive Date: 20040824
  Receipt Date: 20040811
  Transmission Date: 20050211
  Serious: Yes (Death)
  Sender: FDA-Public Use
  Company Number: 208365

PATIENT
  Age: 56 Year
  Sex: Male

DRUGS (1)
  1. RITUXAN [Suspect]
     Indication: NON-HODGKIN'S LYMPHOMA
     Dosage: 375 MG/M2, 1/WEEK, INTRAVENOUS
     Route: 042

REACTIONS (12)
  - ABDOMINAL MASS [None]
  - ARTERIAL THROMBOSIS [None]
  - ATELECTASIS [None]
  - BRONCHIECTASIS [None]
  - CONVULSION [None]
  - GENERAL PHYSICAL HEALTH DETERIORATION [None]
  - INFLAMMATION [None]
  - INTERSTITIAL LUNG DISEASE [None]
  - LUNG INFILTRATION [None]
  - LYMPHADENOPATHY [None]
  - PULMONARY FIBROSIS [None]
  - PULMONARY THROMBOSIS [None]
